FAERS Safety Report 24682508 (Version 4)
Quarter: 2025Q2

REPORT INFORMATION
  Report Type: Spontaneous
  Country: US (occurrence: US)
  Receive Date: 20241130
  Receipt Date: 20250523
  Transmission Date: 20250716
  Serious: Yes (Disabling, Other)
  Sender: SANOFI AVENTIS
  Company Number: US-SA-2024SA349335

PATIENT
  Age: 66 Year
  Sex: Female
  Weight: 65.76 kg

DRUGS (9)
  1. DUPIXENT [Suspect]
     Active Substance: DUPILUMAB
     Indication: Breast cancer female
     Dosage: 300 MG, QOW
     Route: 058
     Dates: start: 202409
  2. VERZENIO [Concomitant]
     Active Substance: ABEMACICLIB
  3. METFORMIN HYDROCHLORIDE [Concomitant]
     Active Substance: METFORMIN HYDROCHLORIDE
  4. HYDROXYZINE HYDROCHLORIDE [Concomitant]
     Active Substance: HYDROXYZINE HYDROCHLORIDE
  5. COLESTIPOL HYDROCHLORIDE [Concomitant]
     Active Substance: COLESTIPOL HYDROCHLORIDE
  6. GABAPENTIN [Concomitant]
     Active Substance: GABAPENTIN
  7. EXEMESTANE [Concomitant]
     Active Substance: EXEMESTANE
  8. ANASTROZOLE [Concomitant]
     Active Substance: ANASTROZOLE
  9. CAPECITABINE [Concomitant]
     Active Substance: CAPECITABINE

REACTIONS (10)
  - Blindness [Unknown]
  - Condition aggravated [Unknown]
  - Erythema [Unknown]
  - Pain of skin [Unknown]
  - Skin atrophy [Unknown]
  - Photopsia [Unknown]
  - Arthritis [Unknown]
  - Vision blurred [Unknown]
  - Dry eye [Unknown]
  - Product use in unapproved indication [Unknown]

NARRATIVE: CASE EVENT DATE: 20240901
